FAERS Safety Report 8611656-1 (Version None)
Quarter: 2012Q3

REPORT INFORMATION
  Report Type: 
  Country: None (occurrence: None)
  Receive Date: 20120822
  Receipt Date: 20120820
  Transmission Date: 20120928
  Serious: Yes (Other)
  Sender: FDA-Public Use
  Company Number: US-PFIZER INC-2012159068

PATIENT
  Age: 60 Year
  Sex: Female
  Weight: 77.098 kg

DRUGS (4)
  1. BENAZEPRIL [Concomitant]
     Indication: HYPERTENSION
     Dosage: 20 MG, UNK
  2. PREMARIN [Suspect]
     Indication: BREAST CANCER
     Dosage: UNK
     Route: 067
     Dates: start: 20070101
  3. PREMARIN [Suspect]
     Indication: HORMONE REPLACEMENT THERAPY
  4. SYNTHROID [Concomitant]
     Indication: THYROID DISORDER
     Dosage: 112 MCG FIVE DAYS AND 100 MCG TWO DAYS IN A WEEK, DAILY

REACTIONS (1)
  - URINARY TRACT INFECTION [None]
